FAERS Safety Report 5911728-6 (Version None)
Quarter: 2008Q4

REPORT INFORMATION
  Report Type: 
  Country: None (occurrence: None)
  Receive Date: 20081008
  Receipt Date: 20081001
  Transmission Date: 20090506
  Serious: Yes (Disabling)
  Sender: FDA-Public Use
  Company Number: GB-RANBAXY-2008RR-18438

PATIENT
  Age: 58 Year
  Sex: Female

DRUGS (5)
  1. LORAZEPAM [Suspect]
     Dosage: UNK
     Route: 048
     Dates: start: 20080801
  2. EFFEXOR XR [Suspect]
     Indication: ANXIETY
     Dosage: 75 MG, QD
     Route: 048
     Dates: start: 20080801
  3. EFFEXOR XR [Suspect]
     Indication: DEPRESSION
     Dosage: 150 MG, QD
     Route: 048
     Dates: start: 20080509, end: 20080801
  4. EFFEXOR XR [Suspect]
     Dosage: 37.5 MG, QD
     Route: 048
     Dates: start: 20080101
  5. EFFEXOR XR [Suspect]
     Dosage: 37.5 MG, UNK
     Route: 048
     Dates: start: 20080129, end: 20080508

REACTIONS (6)
  - DRUG EFFECT DECREASED [None]
  - DRUG WITHDRAWAL SYNDROME [None]
  - HEADACHE [None]
  - MIGRAINE [None]
  - SELF-MEDICATION [None]
  - TINNITUS [None]
